FAERS Safety Report 5416588-8 (Version None)
Quarter: 2007Q3

REPORT INFORMATION
  Report Type: 
  Country: None (occurrence: None)
  Receive Date: 20070814
  Receipt Date: 20070713
  Transmission Date: 20080115
  Serious: Yes (Other)
  Sender: FDA-Public Use
  Company Number: BEPFB-S-20070002

PATIENT
  Age: 55 Year
  Sex: Female

DRUGS (2)
  1. NAVELBINE [Suspect]
     Indication: BREAST CANCER
     Dosage: 50 MGT 1 X WK  IV
     Route: 042
     Dates: start: 20060414, end: 20060503
  2. AREDIA [Concomitant]

REACTIONS (1)
  - CEREBROVASCULAR ACCIDENT [None]
